FAERS Safety Report 11874556 (Version 1)
Quarter: 2015Q4

REPORT INFORMATION
  Report Type: Report from Study
  Country: BR (occurrence: BR)
  Receive Date: 20151229
  Receipt Date: 20151229
  Transmission Date: 20160305
  Serious: Yes (Other)
  Sender: FDA-Public Use
  Company Number: PHHY2015BR170069

PATIENT
  Sex: Female
  Weight: 38 kg

DRUGS (1)
  1. SANDOSTATIN LAR DEPOT [Suspect]
     Active Substance: OCTREOTIDE ACETATE
     Indication: GASTRIC CANCER
     Dosage: 1 DF (30 MG), QMO
     Route: 065
     Dates: start: 201111

REACTIONS (3)
  - Neoplasm malignant [Unknown]
  - Second primary malignancy [Unknown]
  - Product use issue [Unknown]
